FAERS Safety Report 9803559 (Version 1)
Quarter: 2014Q1

REPORT INFORMATION
  Report Type: Spontaneous
  Country: US (occurrence: US)
  Receive Date: 20140108
  Receipt Date: 20140108
  Transmission Date: 20141002
  Serious: No
  Sender: FDA-Public Use
  Company Number: US-GLAXOSMITHKLINE-A1007319A

PATIENT
  Age: 67 Year
  Sex: Female

DRUGS (11)
  1. LOVAZA [Suspect]
     Indication: BIPOLAR DISORDER
     Dosage: 2CAPL THREE TIMES PER DAY
     Route: 048
     Dates: start: 20121115
  2. NIFEDIPINE ER [Concomitant]
  3. CLONIDINE HCL [Concomitant]
  4. PRAVASTATIN [Concomitant]
  5. VITAMIN C [Concomitant]
  6. VITAMIN D3 [Concomitant]
  7. SODIUM BICARBONATE [Concomitant]
  8. OXCARBAZEPINE [Concomitant]
  9. CALCITRIOL [Concomitant]
  10. LORATADINE [Concomitant]
  11. VALIUM [Concomitant]

REACTIONS (4)
  - Asthenia [Recovered/Resolved]
  - Insomnia [Unknown]
  - Off label use [Unknown]
  - Overdose [Unknown]
